FAERS Safety Report 16191348 (Version 4)
Quarter: 2021Q4

REPORT INFORMATION
  Report Type: Spontaneous
  Country: CA (occurrence: CA)
  Receive Date: 20190412
  Receipt Date: 20211005
  Transmission Date: 20220303
  Serious: Yes (Hospitalization, Other)
  Sender: FDA-Public Use
  Company Number: CA-BRISTOL-MYERS SQUIBB COMPANY-BMS-2019-035660

PATIENT
  Age: 75 Year
  Sex: Female

DRUGS (8)
  1. APIXABAN [Interacting]
     Active Substance: APIXABAN
     Indication: Cerebrovascular accident prophylaxis
     Dosage: 5 MILLIGRAM, BID
     Route: 065
  2. APIXABAN [Interacting]
     Active Substance: APIXABAN
     Indication: Cerebrovascular accident
  3. APIXABAN [Interacting]
     Active Substance: APIXABAN
     Indication: Atrial fibrillation
  4. ATORVASTATIN CALCIUM [Suspect]
     Active Substance: ATORVASTATIN CALCIUM
     Dosage: UNK
     Route: 065
  5. ASPIRIN [Interacting]
     Active Substance: ASPIRIN
     Indication: Cerebrovascular accident
     Dosage: UNK
     Route: 065
  6. ASPIRIN [Interacting]
     Active Substance: ASPIRIN
     Indication: Atrial fibrillation
  7. HYDROCHLOROTHIAZIDE [Interacting]
     Active Substance: HYDROCHLOROTHIAZIDE
     Indication: Atrial fibrillation
     Dosage: UNK
     Route: 065
  8. HYDROCHLOROTHIAZIDE [Interacting]
     Active Substance: HYDROCHLOROTHIAZIDE
     Indication: Cerebrovascular accident

REACTIONS (5)
  - Gastrointestinal ulcer haemorrhage [Unknown]
  - Hypotension [Unknown]
  - Haematemesis [Unknown]
  - Acute kidney injury [Unknown]
  - Labelled drug-drug interaction medication error [Unknown]
